FAERS Safety Report 7959572-2 (Version None)
Quarter: 2011Q4

REPORT INFORMATION
  Report Type: 
  Country: None (occurrence: None)
  Receive Date: 20111206
  Receipt Date: 20110805
  Transmission Date: 20120403
  Serious: Yes (Other)
  Sender: FDA-Public Use
  Company Number: AR-JNJFOC-20110806043

PATIENT
  Age: 75 Year
  Sex: Female
  Weight: 59 kg

DRUGS (6)
  1. CINNA [Concomitant]
     Indication: PRODUCT USED FOR UNKNOWN INDICATION
     Route: 048
  2. ^CHOLESTEROL MEDICATION^ [Concomitant]
     Indication: BLOOD CHOLESTEROL
     Route: 065
  3. ASPIRIN [Concomitant]
     Indication: PRODUCT USED FOR UNKNOWN INDICATION
     Route: 048
  4. NICORETTE [Suspect]
     Indication: PRODUCT USED FOR UNKNOWN INDICATION
     Route: 048
     Dates: start: 20050101
  5. NICORETTE [Suspect]
     Indication: PRODUCT USED FOR UNKNOWN INDICATION
     Route: 048
     Dates: start: 20050101
  6. OTHER DRUGS (UNSPECIFIED) [Concomitant]
     Indication: STENT PLACEMENT
     Route: 065

REACTIONS (3)
  - INCORRECT DRUG ADMINISTRATION DURATION [None]
  - DEPENDENCE [None]
  - MYOCARDIAL INFARCTION [None]
